FAERS Safety Report 21394171 (Version 1)
Quarter: 2022Q3

REPORT INFORMATION
  Report Type: Spontaneous
  Country: DE (occurrence: DE)
  Receive Date: 20220930
  Receipt Date: 20220930
  Transmission Date: 20221027
  Serious: Yes (Hospitalization)
  Sender: FDA-Public Use
  Company Number: DE-ADRED-07242-01

PATIENT
  Age: 77 Year
  Sex: Female
  Weight: 67 kg

DRUGS (13)
  1. FLUOROURACIL [Suspect]
     Active Substance: FLUOROURACIL
     Indication: Product used for unknown indication
     Dosage: 1000 MG/M2 DAILY; 1000 MG/M2/24H, ACCORDING TO PLAN, AMPOULES
  2. MITOMYCIN [Suspect]
     Active Substance: MITOMYCIN
     Indication: Product used for unknown indication
     Dosage: 12 MG/M2, ACCORDING TO PLAN, AMPOULES12 MG/M2, ACCORDING TO PLAN, AMPOULES
  3. METOCLOPRAMIDE [Concomitant]
     Active Substance: METOCLOPRAMIDE
     Indication: Product used for unknown indication
     Dosage: 3 DOSAGE FORMS DAILY; 10 MG, 1-1-1-0, UNIT DOSE : 1 DF , FREQUENCY : 3 TIMES A DAY
  4. METAMIZOLE [Concomitant]
     Active Substance: METAMIZOLE
     Indication: Product used for unknown indication
     Dosage: 8 DOSAGE FORMS DAILY; 500 MG, 2-2-2-2, TABLETTEN
  5. LORAZEPAM [Concomitant]
     Active Substance: LORAZEPAM
     Indication: Product used for unknown indication
     Dosage: 1 MG, IF NECESSARY, ORODISPERSIBLE TABLETS
  6. BISOPROLOL [Concomitant]
     Active Substance: BISOPROLOL
     Indication: Product used for unknown indication
     Dosage: 2 DOSAGE FORMS DAILY; 2.5 MG, 1-0-1-0, UNIT DOSE : 1 DF , FREQUENCY : BD
  7. RAMIPRIL [Concomitant]
     Active Substance: RAMIPRIL
     Indication: Product used for unknown indication
     Dosage: 2 DOSAGE FORMS DAILY; 5 MG, 1-0-1-0, UNIT DOSE : 1 DF , FREQUENCY : BD
  8. PANTOPRAZOLE [Concomitant]
     Active Substance: PANTOPRAZOLE
     Indication: Product used for unknown indication
     Dosage: 1 DOSAGE FORMS DAILY; 40 MG, 0-0-1-0, UNIT DOSE : 1 DF , FREQUENCY : OD
  9. CALCIUM CHLORIDE\SODIUM CHLORIDE\SODIUM PHOSPHATE, DIBASIC, ANHYDROUS\ [Concomitant]
     Active Substance: CALCIUM CHLORIDE\SODIUM CHLORIDE\SODIUM PHOSPHATE, DIBASIC, ANHYDROUS\SODIUM PHOSPHATE, MONOBASIC, A
     Indication: Product used for unknown indication
     Dosage: 3 DOSAGE FORMS DAILY; 1-1-1-0, UNIT DOSE : 1 DF , FREQUENCY : 3 TIMES A DAY
  10. ENOXAPARIN [Concomitant]
     Active Substance: ENOXAPARIN
     Indication: Product used for unknown indication
     Dosage: 1 DOSAGE FORMS DAILY; 40MG/0.4ML, 0-0-1-0, PRE-FILLED SYRINGES, UNIT DOSE : 1 DF , FREQUENCY : OD
  11. SODIUM PICOSULFATE [Concomitant]
     Active Substance: SODIUM PICOSULFATE
     Indication: Product used for unknown indication
     Dosage: 7.5 MG/ML, AS NEEDED, DROPS
  12. LACTULOSE [Concomitant]
     Active Substance: LACTULOSE
     Indication: Product used for unknown indication
     Dosage: 3,335G/5ML, IF NEEDED, JUICE
  13. ONDANSETRON [Concomitant]
     Active Substance: ONDANSETRON
     Indication: Product used for unknown indication
     Dosage: 8 MG, IF NEEDED, ORODISPERSIBLE TABLETS

REACTIONS (4)
  - Leukopenia [Unknown]
  - Anal injury [Unknown]
  - Nausea [Unknown]
  - Wound complication [Unknown]
